FAERS Safety Report 15441365 (Version 1)
Quarter: 2018Q3

REPORT INFORMATION
  Report Type: Spontaneous
  Country: US (occurrence: US)
  Receive Date: 20180928
  Receipt Date: 20180928
  Transmission Date: 20181010
  Serious: No
  Sender: FDA-Public Use
  Company Number: US-ARBOR PHARMACEUTICALS, LLC-US-2018ARB000847

PATIENT
  Sex: Male

DRUGS (2)
  1. EVEKEO [Suspect]
     Active Substance: AMPHETAMINE SULFATE
     Dosage: 10 MG, BID
     Route: 065
  2. EVEKEO [Suspect]
     Active Substance: AMPHETAMINE SULFATE
     Indication: PRODUCT USED FOR UNKNOWN INDICATION
     Dosage: 10 MG, TID

REACTIONS (2)
  - Fatigue [Unknown]
  - Affective disorder [Unknown]
